FAERS Safety Report 6894092-8 (Version None)
Quarter: 2010Q3

REPORT INFORMATION
  Report Type: 
  Country: None (occurrence: None)
  Receive Date: 20100802
  Receipt Date: 20100727
  Transmission Date: 20110219
  Serious: Yes (Life-Threatening, Other)
  Sender: FDA-Public Use
  Company Number: PT-JNJFOC-20100707724

PATIENT
  Sex: Female
  Weight: 80 kg

DRUGS (12)
  1. TOPAMAX [Suspect]
     Indication: STATUS EPILEPTICUS
  2. LEVETIRACETAM [Suspect]
     Indication: STATUS EPILEPTICUS
     Route: 042
  3. CARBAMAZEPINE [Suspect]
     Indication: STATUS EPILEPTICUS
  4. VALPROIC ACID [Concomitant]
     Indication: STATUS EPILEPTICUS
  5. CLONAZEPAM [Concomitant]
     Indication: STATUS EPILEPTICUS
  6. ACYCLOVIR [Concomitant]
     Indication: ENCEPHALITIS
  7. GANCICLOVIR [Concomitant]
     Indication: ENCEPHALITIS
  8. CEFTRIAXONE [Concomitant]
     Indication: ENCEPHALITIS
  9. CLINDAMYCIN [Concomitant]
     Indication: ENCEPHALITIS
  10. MEROPENEM [Concomitant]
     Indication: ENCEPHALITIS
  11. LINEZOLID [Concomitant]
     Indication: ENCEPHALITIS
  12. PHENYTOIN [Concomitant]
     Indication: STATUS EPILEPTICUS

REACTIONS (5)
  - CIRCULATORY COLLAPSE [None]
  - HEPATIC FAILURE [None]
  - PYREXIA [None]
  - RENAL FAILURE [None]
  - THERAPEUTIC AGENT TOXICITY [None]
